FAERS Safety Report 11629334 (Version 2)
Quarter: 2015Q4

REPORT INFORMATION
  Report Type: Spontaneous
  Country: FR (occurrence: FR)
  Receive Date: 20151014
  Receipt Date: 20151202
  Transmission Date: 20160304
  Serious: Yes (Other)
  Sender: FDA-Public Use
  Company Number: FR-ROCHE-1645504

PATIENT
  Age: 41 Year
  Sex: Female

DRUGS (5)
  1. SERETIDE [Concomitant]
     Active Substance: FLUTICASONE FUROATE\SALMETEROL XINAFOATE
     Route: 065
     Dates: start: 2010
  2. XOLAIR [Suspect]
     Active Substance: OMALIZUMAB
     Route: 058
     Dates: start: 20150806
  3. VENTOLINE [Concomitant]
     Active Substance: ALBUTEROL
     Route: 065
     Dates: start: 2010
  4. SINGULAIR [Concomitant]
     Active Substance: MONTELUKAST SODIUM
     Route: 065
     Dates: start: 2010
  5. XOLAIR [Suspect]
     Active Substance: OMALIZUMAB
     Indication: ASTHMA
     Dosage: LAST DOSE ADMINISTERED PRIOR TO SPONTANEOUS MISCARRIAGE: 06/AUG/2015
     Route: 058
     Dates: start: 20150601

REACTIONS (2)
  - Abortion spontaneous [Unknown]
  - Maternal exposure during pregnancy [Unknown]

NARRATIVE: CASE EVENT DATE: 20150917
